FAERS Safety Report 23632055 (Version 1)
Quarter: 2024Q1

REPORT INFORMATION
  Report Type: Spontaneous
  Country: US (occurrence: US)
  Receive Date: 20240314
  Receipt Date: 20240314
  Transmission Date: 20240410
  Serious: Yes (Death, Hospitalization)
  Sender: FDA-Public Use
  Company Number: US-DRL-USA-LIT/USA/24/0004143

PATIENT
  Age: 73 Year
  Sex: Male

DRUGS (2)
  1. ALBENDAZOLE [Suspect]
     Active Substance: ALBENDAZOLE
     Indication: Neurocysticercosis
  2. PREDNISONE [Suspect]
     Active Substance: PREDNISONE
     Indication: Neurocysticercosis

REACTIONS (1)
  - Drug ineffective [Fatal]
